FAERS Safety Report 20930256 (Version 1)
Quarter: 2022Q2

REPORT INFORMATION
  Report Type: Spontaneous
  Country: US (occurrence: US)
  Receive Date: 20220608
  Receipt Date: 20220608
  Transmission Date: 20220721
  Serious: Yes (Other)
  Sender: FDA-Public Use
  Company Number: US-drreddys-LIT/USA/22/0150922

PATIENT
  Age: 7 Year
  Sex: Female

DRUGS (12)
  1. FOSPHENYTOIN SODIUM [Suspect]
     Active Substance: FOSPHENYTOIN SODIUM
     Indication: Epilepsy
  2. LACOSAMIDE [Suspect]
     Active Substance: LACOSAMIDE
     Indication: Epilepsy
  3. PENTOBARBITAL [Suspect]
     Active Substance: PENTOBARBITAL
     Indication: Epilepsy
  4. MIDAZOLAM [Suspect]
     Active Substance: MIDAZOLAM
     Indication: Epilepsy
  5. KETAMINE [Suspect]
     Active Substance: KETAMINE
     Indication: Epilepsy
  6. CANNABIDIOL [Suspect]
     Active Substance: CANNABIDIOL
     Indication: Epilepsy
  7. METHYLPREDNISOLONE [Suspect]
     Active Substance: METHYLPREDNISOLONE
     Indication: Epilepsy
  8. TOPIRAMATE [Suspect]
     Active Substance: TOPIRAMATE
     Indication: Epilepsy
  9. HUMAN IMMUNOGLOBULIN G [Suspect]
     Active Substance: HUMAN IMMUNOGLOBULIN G
     Indication: Epilepsy
     Route: 042
  10. LEVETIRACETAM [Concomitant]
     Active Substance: LEVETIRACETAM
     Indication: Seizure
  11. LORAZEPAM [Concomitant]
     Active Substance: LORAZEPAM
     Indication: Seizure
  12. AMOXICILLIN [Concomitant]
     Active Substance: AMOXICILLIN
     Indication: Pharyngitis streptococcal

REACTIONS (1)
  - Drug ineffective [Unknown]
